FAERS Safety Report 20810175 (Version 1)
Quarter: 2022Q2

REPORT INFORMATION
  Report Type: Spontaneous
  Country: US (occurrence: None)
  Receive Date: 20220510
  Receipt Date: 20220510
  Transmission Date: 20220720
  Serious: No
  Sender: FDA-Public Use
  Company Number: None

PATIENT
  Sex: Female

DRUGS (1)
  1. TOBRAMYCIN [Suspect]
     Active Substance: TOBRAMYCIN
     Indication: Bronchiectasis
     Dosage: TWICE DAILY FOR 14 DAYS ON, THEN 14 DAYS OFF ?
     Route: 055
     Dates: start: 202203

REACTIONS (1)
  - Dyspnoea [None]
